FAERS Safety Report 25795818 (Version 1)
Quarter: 2025Q3

REPORT INFORMATION
  Report Type: Spontaneous
  Country: US (occurrence: US)
  Receive Date: 20250912
  Receipt Date: 20250912
  Transmission Date: 20251020
  Serious: Yes (Hospitalization, Other)
  Sender: SANOFI AVENTIS
  Company Number: US-SA-2025SA272117

PATIENT
  Age: 54 Year
  Sex: Female

DRUGS (1)
  1. DUPIXENT [Suspect]
     Active Substance: DUPILUMAB
     Indication: Dermatitis atopic
     Dates: start: 20250707, end: 20250726

REACTIONS (11)
  - Sepsis [Unknown]
  - Cardiac failure congestive [Unknown]
  - Dehydration [Unknown]
  - Swelling [Unknown]
  - Hypotension [Unknown]
  - Heart rate increased [Unknown]
  - Electrolyte imbalance [Unknown]
  - Oropharyngeal pain [Unknown]
  - Urinary tract infection [Unknown]
  - Arthralgia [Unknown]
  - Rash [Unknown]

NARRATIVE: CASE EVENT DATE: 20250101
